FAERS Safety Report 12094044 (Version 5)
Quarter: 2020Q3

REPORT INFORMATION
  Report Type: Report from Study
  Country: US (occurrence: US)
  Receive Date: 20160219
  Receipt Date: 20170503
  Transmission Date: 20201105
  Serious: Yes (Hospitalization)
  Sender: FDA-Public Use
  Company Number: US-JNJFOC-20160207662

PATIENT
  Age: 55 Year
  Sex: Male
  Weight: 86 kg

DRUGS (8)
  1. ACETAMINOPHEN. [Concomitant]
     Active Substance: ACETAMINOPHEN
     Dosage: ONCE ON C1D1 AND C1D8
     Route: 048
     Dates: start: 20160126
  2. DIPHENHYDRAMINE HYDROCHLORIDE. [Concomitant]
     Active Substance: DIPHENHYDRAMINE HYDROCHLORIDE
     Dosage: TWICE ON C1D1
     Route: 042
     Dates: start: 20160126
  3. DIPHENHYDRAMINE HYDROCHLORIDE. [Concomitant]
     Active Substance: DIPHENHYDRAMINE HYDROCHLORIDE
     Dosage: ONCE ON C1D1 AND C1D8
     Route: 042
     Dates: start: 20160126
  4. SINGULAIR [Concomitant]
     Active Substance: MONTELUKAST SODIUM
     Dosage: ONCE
     Route: 048
     Dates: start: 20160202
  5. METHYLPREDNISOLONE. [Concomitant]
     Active Substance: METHYLPREDNISOLONE
     Dosage: ONCE ON C1D1
     Route: 042
     Dates: start: 20160126
  6. DARATUMUMAB [Suspect]
     Active Substance: DARATUMUMAB
     Route: 042
  7. DARATUMUMAB [Suspect]
     Active Substance: DARATUMUMAB
     Indication: MANTLE CELL LYMPHOMA
     Dosage: CYCLE 1; FREQUENCY: ONCE; DOSE: 16 MG/KG
     Route: 042
     Dates: start: 20160126, end: 20160202
  8. METHYLPREDNISOLONE. [Concomitant]
     Active Substance: METHYLPREDNISOLONE
     Dosage: ONCE ON C1D1 AND C1D8
     Route: 042
     Dates: start: 20160126

REACTIONS (2)
  - Pyrexia [Recovered/Resolved]
  - Neutropenia [Recovered/Resolved]

NARRATIVE: CASE EVENT DATE: 20160206
